FAERS Safety Report 7357909-9 (Version None)
Quarter: 2011Q1

REPORT INFORMATION
  Report Type: 
  Country: None (occurrence: None)
  Receive Date: 20110307
  Receipt Date: 20101102
  Transmission Date: 20110831
  Serious: No
  Sender: FDA-Public Use
  Company Number: AECAN201000406

PATIENT
  Age: 38 Year
  Sex: Male
  Weight: 99.7913 kg

DRUGS (5)
  1. PROLASTIN-C [Suspect]
     Indication: ALPHA-1 ANTI-TRYPSIN DEFICIENCY
     Dosage: 6000 MG; QW; IV
     Route: 042
     Dates: start: 20101103
  2. SPIRIVA [Concomitant]
  3. SYMBICORT [Concomitant]
  4. OLMETEC (OLMESARTAN MEDOXOMIL) (20 MG) [Suspect]
     Indication: PRODUCT USED FOR UNKNOWN INDICATION
     Dosage: 20 MG; QD; PO
     Route: 048
     Dates: start: 20101019
  5. PROLASTIN [Suspect]
     Indication: ALPHA-1 ANTI-TRYPSIN DEFICIENCY
     Dosage: 60 MG/KG; QW; IV
     Route: 042
     Dates: start: 20101027, end: 20101027

REACTIONS (8)
  - INFUSION SITE PAIN [None]
  - DIZZINESS [None]
  - VOMITING [None]
  - NAUSEA [None]
  - LOSS OF CONSCIOUSNESS [None]
  - INFUSION SITE EXTRAVASATION [None]
  - ASTHENIA [None]
  - FATIGUE [None]
